FAERS Safety Report 5633801-2 (Version None)
Quarter: 2008Q1

REPORT INFORMATION
  Report Type: 
  Country: None (occurrence: None)
  Receive Date: 20080131
  Receipt Date: 20070503
  Transmission Date: 20080703
  Serious: Yes (Other)
  Sender: FDA-Public Use
  Company Number: 153469USA

PATIENT
  Sex: Male
  Weight: 65.7716 kg

DRUGS (2)
  1. COPAXONE [Suspect]
     Indication: MULTIPLE SCLEROSIS
     Dosage: (20 MG),SUBCUTANEOUS
     Route: 058
     Dates: start: 20060101
  2. FLUTICASONE PROPIONATE [Concomitant]

REACTIONS (1)
  - ERYTHEMA NODOSUM [None]
